FAERS Safety Report 21515834 (Version 1)
Quarter: 2022Q4

REPORT INFORMATION
  Report Type: Spontaneous
  Country: JP (occurrence: None)
  Receive Date: 20221027
  Receipt Date: 20221027
  Transmission Date: 20230112
  Serious: Yes (Other)
  Sender: FDA-Public Use
  Company Number: 2022A354325

PATIENT
  Age: 67 Year
  Sex: Male
  Weight: 54 kg

DRUGS (2)
  1. IMFINZI [Suspect]
     Active Substance: DURVALUMAB
     Indication: Non-small cell lung cancer
     Route: 041
  2. IMFINZI [Suspect]
     Active Substance: DURVALUMAB
     Indication: Non-small cell lung cancer
     Route: 041

REACTIONS (5)
  - Pneumothorax [Unknown]
  - Pneumonitis [Unknown]
  - Radiation pneumonitis [Unknown]
  - Pleural effusion [Unknown]
  - Pleurisy [Unknown]
